FAERS Safety Report 25023562 (Version 1)
Quarter: 2025Q1

REPORT INFORMATION
  Report Type: Spontaneous
  Country: JP (occurrence: JP)
  Receive Date: 20250228
  Receipt Date: 20250228
  Transmission Date: 20250409
  Serious: Yes (Hospitalization, Other)
  Sender: MERCK SHARP & DOHME LLC
  Company Number: JP-MSD-M2024-41366

PATIENT
  Sex: Female

DRUGS (1)
  1. KEYTRUDA [Suspect]
     Active Substance: PEMBROLIZUMAB
     Indication: Ameloblastic carcinoma
     Dosage: DOSE DESCRIPTION : 200 MILLIGRAM, Q3W?DAILY DOSE : 9.4 MILLIGRAM?REGIMEN DOSE : 6200  MILLIGRAM
     Route: 041
     Dates: start: 20220822, end: 20240531

REACTIONS (3)
  - Cardiac failure [Recovered/Resolved]
  - Cardiac ventricular thrombosis [Unknown]
  - Myocarditis [Unknown]

NARRATIVE: CASE EVENT DATE: 20240712
